FAERS Safety Report 5277666-X (Version None)
Quarter: 2007Q1

REPORT INFORMATION
  Report Type: 
  Country: None (occurrence: None)
  Receive Date: 20070320
  Receipt Date: 20070309
  Transmission Date: 20070707
  Serious: Yes (Hospitalization)
  Sender: FDA-Public Use
  Company Number: WAES 0703USA01955

PATIENT
  Age: 75 Year
  Sex: Male

DRUGS (5)
  1. PRINIVIL [Suspect]
     Indication: HYPERTENSION
     Dates: start: 19990101
  2. HYDRODIURIL [Suspect]
     Indication: DIURETIC THERAPY
     Dates: start: 19990101, end: 20070222
  3. STUDY (UNSPECIFIED) [Suspect]
     Dates: start: 20070207
  4. COUMADIN [Concomitant]
  5. ASPIRIN [Concomitant]

REACTIONS (11)
  - ACUTE PRERENAL FAILURE [None]
  - COAGULOPATHY [None]
  - FAT EMBOLISM [None]
  - HEADACHE [None]
  - HYPOTENSION [None]
  - HYPOVOLAEMIA [None]
  - MALAISE [None]
  - NEPHROPATHY TOXIC [None]
  - RENAL FAILURE [None]
  - URINARY TRACT INFECTION [None]
  - UROSEPSIS [None]
